FAERS Safety Report 10141723 (Version 1)
Quarter: 2014Q2

REPORT INFORMATION
  Report Type: Spontaneous
  Country: US (occurrence: US)
  Receive Date: 20140429
  Receipt Date: 20140429
  Transmission Date: 20141212
  Serious: No
  Sender: FDA-Public Use
  Company Number: US-MYLANLABS-2013S1027524

PATIENT
  Sex: Male

DRUGS (6)
  1. DOXEPIN HCL [Suspect]
  2. DOXEPIN HCL [Suspect]
  3. LORAZEPAM [Suspect]
  4. FLUOXETINE HCL [Suspect]
  5. AMITRYPTILINE HYDROCHLORIDE [Suspect]
  6. AMITRYPTILINE HYDROCHLORIDE [Suspect]

REACTIONS (3)
  - Altered state of consciousness [Not Recovered/Not Resolved]
  - Thinking abnormal [Not Recovered/Not Resolved]
  - Mental disorder [Not Recovered/Not Resolved]
